FAERS Safety Report 24219867 (Version 3)
Quarter: 2025Q1

REPORT INFORMATION
  Report Type: Spontaneous
  Country: US (occurrence: US)
  Receive Date: 20240817
  Receipt Date: 20250312
  Transmission Date: 20250409
  Serious: Yes (Hospitalization)
  Sender: SANOFI AVENTIS
  Company Number: US-SA-SAC20240809001061

PATIENT
  Age: 67 Year
  Sex: Male

DRUGS (1)
  1. DUPIXENT [Suspect]
     Active Substance: DUPILUMAB
     Indication: Eczema
     Dosage: 300 MG, QOW
     Route: 058
     Dates: start: 202402, end: 202406

REACTIONS (4)
  - Thermal burn [Unknown]
  - Weight decreased [Recovering/Resolving]
  - Decreased appetite [Unknown]
  - Ageusia [Unknown]

NARRATIVE: CASE EVENT DATE: 20240101
